FAERS Safety Report 17390008 (Version 2)
Quarter: 2020Q1

REPORT INFORMATION
  Report Type: Report from Study
  Country: None (occurrence: CN)
  Receive Date: 20200207
  Receipt Date: 20200220
  Transmission Date: 20200409
  Serious: Yes (Hospitalization)
  Sender: FDA-Public Use
  Company Number: CN-ABBVIE-20P-035-3259514-00

PATIENT
  Age: 70 Year
  Sex: Male
  Weight: 45 kg

DRUGS (17)
  1. COMPOUND SODIUM CHLORIDE [Concomitant]
     Indication: PROPHYLAXIS
     Route: 042
     Dates: start: 20200114, end: 20200114
  2. TORASEMIDE [Concomitant]
     Active Substance: TORSEMIDE
     Indication: POLYURIA
     Route: 042
     Dates: start: 20200130
  3. CALCIUM GLUCONATE INJECTION [Concomitant]
     Indication: HYPOCALCAEMIA
     Route: 041
     Dates: start: 20200114
  4. OMEPRAZOLE SODIUM INJECTION [Concomitant]
     Active Substance: OMEPRAZOLE SODIUM
     Indication: PROPHYLAXIS
     Route: 041
     Dates: start: 20200114, end: 20200114
  5. VENETOCLAX. [Suspect]
     Active Substance: VENETOCLAX
     Route: 048
     Dates: start: 20200130
  6. 5% SODIUM BICARBONATE [Concomitant]
     Indication: PROPHYLAXIS
     Route: 042
     Dates: start: 20200112, end: 20200116
  7. VENETOCLAX. [Suspect]
     Active Substance: VENETOCLAX
     Indication: CHRONIC LYMPHOCYTIC LEUKAEMIA
     Route: 048
     Dates: start: 20200114, end: 20200121
  8. NORMAL SALINE SOLUTION (0.9% SODIUM CHLORIDE) [Concomitant]
     Route: 042
     Dates: start: 20200115, end: 20200116
  9. TORASEMIDE [Concomitant]
     Active Substance: TORSEMIDE
     Indication: BLOOD PHOSPHORUS INCREASED
     Route: 042
     Dates: start: 20200115, end: 20200116
  10. MENTHOL CAMPHOR NASAL DROPS [Concomitant]
     Indication: NASAL DRYNESS
     Route: 045
     Dates: start: 20200114
  11. CEFOPERAZONE SODIUM AND SULBACTAM SODIUM INJECTION [Concomitant]
     Indication: PYREXIA
     Route: 041
     Dates: start: 20200114, end: 20200115
  12. SEVELAMER HYDROCHLORIDE. [Concomitant]
     Active Substance: SEVELAMER HYDROCHLORIDE
     Indication: HYPERPHOSPHATAEMIA
     Route: 048
     Dates: start: 20200115
  13. NORMAL SALINE SOLUTION (0.9% SODIUM CHLORIDE) [Concomitant]
     Indication: PROPHYLAXIS
     Route: 042
     Dates: start: 20200112, end: 20200113
  14. NORMAL SALINE SOLUTION (0.9% SODIUM CHLORIDE) [Concomitant]
     Route: 042
     Dates: start: 20200114, end: 20200114
  15. DEXAMETHASONE INJECTION [Concomitant]
     Active Substance: DEXAMETHASONE
     Indication: PYREXIA
     Route: 042
     Dates: start: 20200114, end: 20200114
  16. VENETOCLAX. [Suspect]
     Active Substance: VENETOCLAX
     Route: 048
     Dates: start: 20200122, end: 20200129
  17. FEBUXOSTAT TABLETS [Concomitant]
     Active Substance: FEBUXOSTAT
     Indication: PROPHYLAXIS
     Route: 048
     Dates: start: 20200111, end: 20200206

REACTIONS (1)
  - Pneumonia [Not Recovered/Not Resolved]

NARRATIVE: CASE EVENT DATE: 20200128
